APPROVED DRUG PRODUCT: NIPRIDE RTU IN SODIUM CHLORIDE 0.9%
Active Ingredient: SODIUM NITROPRUSSIDE
Strength: 10MG/50ML (0.2MG/ML) **Federal Register determination that product was not discontinued or withdrawn for safety or effectiveness reasons**
Dosage Form/Route: SOLUTION;INTRAVENOUS
Application: N209387 | Product #002
Applicant: EXELA PHARMA SCIENCES LLC
Approved: Dec 7, 2017 | RLD: Yes | RS: No | Type: DISCN